FAERS Safety Report 8660745 (Version 2)
Quarter: 2012Q4

REPORT INFORMATION
  Report Type: 
  Country: FI (occurrence: FI)
  Receive Date: 20120711
  Receipt Date: 20121026
  Transmission Date: 20130627
  Serious: Yes (Hospitalization, Other)
  Sender: FDA-Public Use
  Company Number: FI-009507513-1207FIN000734

PATIENT
  Age: 74 Year
  Sex: Female

DRUGS (6)
  1. REBETOL [Suspect]
     Indication: HEPATITIS
     Dosage: UNK
     Route: 048
     Dates: start: 201202, end: 201208
  2. PEGASYS [Suspect]
     Indication: HEPATITIS
     Dosage: 180 Microgram, UNK
     Dates: start: 201202, end: 201204
  3. PEGASYS [Suspect]
     Dosage: 135 Microgram, UNK
     Dates: start: 201204, end: 201207
  4. PEGASYS [Suspect]
     Dosage: 180 UNK, UNK
     Dates: start: 201207, end: 201208
  5. COPEGUS [Suspect]
     Indication: HEPATITIS C
     Dosage: UNK
     Dates: end: 201202
  6. NEUPOGEN [Suspect]
     Indication: NEUTROPENIA
     Dosage: UNK
     Dates: start: 201204

REACTIONS (13)
  - Neutropenia [Unknown]
  - Retinal disorder [Not Recovered/Not Resolved]
  - Rash pruritic [Not Recovered/Not Resolved]
  - Skin ulcer [Not Recovered/Not Resolved]
  - Alopecia [Not Recovered/Not Resolved]
  - Fatigue [Not Recovered/Not Resolved]
  - Asthma [Not Recovered/Not Resolved]
  - Weight decreased [Not Recovered/Not Resolved]
  - Asthenia [Not Recovered/Not Resolved]
  - White blood cell count decreased [Recovered/Resolved]
  - Bone pain [Not Recovered/Not Resolved]
  - Arthralgia [Not Recovered/Not Resolved]
  - Rash generalised [None]
